FAERS Safety Report 4921259-8 (Version None)
Quarter: 2006Q1

REPORT INFORMATION
  Report Type: 
  Country: None (occurrence: None)
  Receive Date: 20060222
  Receipt Date: 20060222
  Transmission Date: 20060701
  Serious: Yes (Death, Hospitalization)
  Sender: FDA-Public Use
  Company Number: None

PATIENT
  Age: 66 Year
  Sex: Female
  Weight: 50.4 kg

DRUGS (2)
  1. DROTRECOGIN ALFA ACTIVATED   5 MG     ELI LILLY [Suspect]
     Indication: SEPSIS
     Dosage: 24 MCG/KG/HOUR   CONTINUOUS  IV DRIP
     Route: 041
     Dates: start: 20060207, end: 20060210
  2. ENOXAPARIN SODIUM [Suspect]
     Indication: THROMBOSIS PROPHYLAXIS
     Dosage: 40 MG  DAILY  SQ
     Route: 058
     Dates: start: 20060204, end: 20060212

REACTIONS (6)
  - CEREBRAL HAEMORRHAGE [None]
  - DEPRESSION [None]
  - GASTROINTESTINAL HAEMORRHAGE [None]
  - RENAL IMPAIRMENT [None]
  - SEPSIS [None]
  - THROMBOCYTOPENIA [None]
